FAERS Safety Report 16065872 (Version 1)
Quarter: 2019Q2

REPORT INFORMATION
  Report Type: Spontaneous
  Country: US (occurrence: US)
  Receive Date: 20190312
  Receipt Date: 20190312
  Transmission Date: 20190711
  Serious: No
  Sender: FDA-Public Use
  Company Number: None

PATIENT
  Age: 74 Year
  Sex: Male
  Weight: 82.35 kg

DRUGS (1)
  1. LOSARTAN POTASSIUM TABLETS USP 50 MG, NDC 31722-701-90 [Suspect]
     Active Substance: LOSARTAN POTASSIUM
     Indication: HYPERTENSION
     Dosage: ?          QUANTITY:90 TABLET(S);?
     Route: 048
     Dates: start: 20190207, end: 20190312

REACTIONS (5)
  - Product substitution issue [None]
  - Laboratory test abnormal [None]
  - Recalled product administered [None]
  - Blood pressure increased [None]
  - Sensory disturbance [None]

NARRATIVE: CASE EVENT DATE: 20190213
